FAERS Safety Report 9324243 (Version 3)
Quarter: 2013Q3

REPORT INFORMATION
  Report Type: Spontaneous
  Country: NO (occurrence: NO)
  Receive Date: 20130603
  Receipt Date: 20130827
  Transmission Date: 20140515
  Serious: Yes (Death, Hospitalization, Other)
  Sender: FDA-Public Use
  Company Number: PHHY2013NO055430

PATIENT
  Age: 58 Year
  Sex: Female

DRUGS (9)
  1. DOCETAXEL [Suspect]
     Indication: BREAST CANCER
     Dosage: 100 MG/M2, Q2W
     Route: 042
  2. EPIRUBICIN [Concomitant]
     Indication: BREAST CANCER
     Dosage: 60 MG/M2, Q2W
     Route: 042
  3. ONDANSETRAN [Concomitant]
  4. APREPITANT [Concomitant]
  5. PEGFILGRASTIM [Concomitant]
  6. COTRIMOXAZOLE [Concomitant]
  7. PREDNISOLONE [Concomitant]
  8. CEFOTAXIME [Concomitant]
  9. DEXAMETHASONE [Concomitant]

REACTIONS (22)
  - Respiratory failure [Fatal]
  - Atypical pneumonia [Fatal]
  - Hypercapnia [Fatal]
  - Hypoxia [Fatal]
  - Respiratory distress [Fatal]
  - Pneumonitis [Fatal]
  - Lung infiltration [Fatal]
  - Cough [Fatal]
  - Pyrexia [Fatal]
  - Fatigue [Fatal]
  - Aspiration [Fatal]
  - Tachycardia [Fatal]
  - Interstitial lung disease [Fatal]
  - Dyspnoea [Fatal]
  - Pulmonary function test decreased [Fatal]
  - Pneumomediastinum [Unknown]
  - Pneumothorax [Unknown]
  - Pneumopericardium [Unknown]
  - Haemothorax [Unknown]
  - Palmar-plantar erythrodysaesthesia syndrome [Unknown]
  - Pain of skin [Unknown]
  - Skin exfoliation [Unknown]
